FAERS Safety Report 24071832 (Version 1)
Quarter: 2024Q3

REPORT INFORMATION
  Report Type: Report from Study
  Country: DE (occurrence: DE)
  Receive Date: 20240710
  Receipt Date: 20240710
  Transmission Date: 20241017
  Serious: No
  Sender: ROCHE
  Company Number: DE-ROCHE-3391978

PATIENT
  Age: 7 Year
  Sex: Male
  Weight: 32.6 kg

DRUGS (2)
  1. EVRYSDI [Suspect]
     Active Substance: RISDIPLAM
     Indication: Spinal muscular atrophy
     Dosage: ON 14/JUN/2023, 28/FEB/2024, HE RECEIVED LAST DOSE OF RISDIPLAM.
     Route: 048
     Dates: start: 20230217
  2. CHOLECALCIFEROL [Concomitant]
     Active Substance: CHOLECALCIFEROL
     Dosage: UNKNOWN? FREQUENCY TEXT:UNKNOWN

REACTIONS (4)
  - Vomiting [Recovered/Resolved]
  - Conjunctivitis [Recovered/Resolved]
  - Vomiting [Recovered/Resolved]
  - Respiratory tract infection [Recovered/Resolved]

NARRATIVE: CASE EVENT DATE: 20230221
